FAERS Safety Report 6019492-X (Version None)
Quarter: 2008Q4

REPORT INFORMATION
  Report Type: 
  Country: None (occurrence: None)
  Receive Date: 20081224
  Receipt Date: 20081210
  Transmission Date: 20090506
  Serious: Yes (Hospitalization)
  Sender: FDA-Public Use
  Company Number: JP-PFIZER INC-2008155558

PATIENT
  Age: 77 Year

DRUGS (2)
  1. GARENOXACIN MESYLATE [Suspect]
  2. ZITHROMAX [Suspect]
     Indication: PYREXIA
     Dosage: UNK
     Route: 048
     Dates: start: 20081101

REACTIONS (1)
  - HEPATITIS FULMINANT [None]
